FAERS Safety Report 8043635-X (Version None)
Quarter: 2012Q1

REPORT INFORMATION
  Report Type: 
  Country: None (occurrence: None)
  Receive Date: 20120112
  Receipt Date: 20120103
  Transmission Date: 20120608
  Serious: Yes (Hospitalization)
  Sender: FDA-Public Use
  Company Number: FR-ASTRAZENECA-2012SE00484

PATIENT
  Age: 27045 Day
  Sex: Female

DRUGS (12)
  1. FLUTICASONE PROPIONATE/SALMETEROL [Suspect]
     Dosage: 500 / 50 UG PER DOSE, 4 DOSAGE FORMS PER DAY, LONG LASTING TREATMENT
  2. GINKOR FORT [Suspect]
     Route: 048
  3. DESLORATADINE [Suspect]
     Route: 048
  4. ACETAMINOPHEN [Suspect]
     Route: 048
  5. ALENDRONATE SODIUM [Suspect]
     Route: 048
  6. MOVIPREP [Suspect]
     Route: 048
  7. CALCIUM CARBONATE [Suspect]
     Route: 048
  8. ZOPLICONE [Suspect]
     Route: 048
  9. CODEINATE KLIPAL [Suspect]
     Dosage: 600 MG / 50 MG SIX DOSAGE FORMS PER DAY, LONG LASTING TREATMENT
     Route: 048
     Dates: end: 20111106
  10. ALDALIX [Suspect]
     Dosage: 50 MG / 20 MG, ONE DOSAGE FORM PER DAY , LONG LASTING TREATMENT
     Route: 048
  11. RHINOCORT [Suspect]
     Route: 045
  12. SINGULAIR [Suspect]
     Route: 048

REACTIONS (1)
  - CONFUSIONAL STATE [None]
